FAERS Safety Report 5011791-3 (Version None)
Quarter: 2006Q2

REPORT INFORMATION
  Report Type: 
  Country: None (occurrence: None)
  Receive Date: 20060524
  Receipt Date: 20060524
  Transmission Date: 20061013
  Serious: Yes (Hospitalization)
  Sender: FDA-Public Use
  Company Number: None

PATIENT
  Age: 63 Year
  Sex: Male
  Weight: 139.5 kg

DRUGS (1)
  1. LISINOPRIL [Suspect]
     Dosage: 40 MG QD PO
     Route: 048
     Dates: start: 20051103, end: 20060318

REACTIONS (3)
  - BLOOD POTASSIUM INCREASED [None]
  - DYSPNOEA [None]
  - PNEUMONIA [None]
